FAERS Safety Report 18536977 (Version 1)
Quarter: 2020Q4

REPORT INFORMATION
  Report Type: Spontaneous
  Country: JP (occurrence: JP)
  Receive Date: 20201124
  Receipt Date: 20201124
  Transmission Date: 20210114
  Serious: Yes (Other)
  Sender: FDA-Public Use
  Company Number: JP-009507513-2011JPN000918J

PATIENT
  Age: 72 Year
  Sex: Male

DRUGS (9)
  1. BELSOMRA [Suspect]
     Active Substance: SUVOREXANT
     Indication: INSOMNIA
     Dosage: 15 MILLIGRAM, QD
     Route: 048
     Dates: start: 20201009, end: 20201014
  2. LOSARHYD [Concomitant]
     Active Substance: HYDROCHLOROTHIAZIDE\LOSARTAN POTASSIUM
     Dosage: 5 MILLIGRAM, QD
     Route: 048
     Dates: start: 202001
  3. REBAMIPIDE [Concomitant]
     Active Substance: REBAMIPIDE
     Dosage: 100 MILLIGRAM, TID
     Route: 048
     Dates: start: 202001
  4. MOSAPRIDE CITRATE HYDRATE [Concomitant]
     Active Substance: MOSAPRIDE CITRATE DIHYDRATE
     Dosage: 5 MILLIGRAM, BID
     Route: 048
     Dates: start: 202001
  5. BELSOMRA [Suspect]
     Active Substance: SUVOREXANT
     Dosage: 15 MILLIGRAM, QD
     Route: 048
     Dates: start: 20201016, end: 20201016
  6. NIZATIDINE. [Concomitant]
     Active Substance: NIZATIDINE
     Dosage: 75 MILLIGRAM, BID
     Route: 048
     Dates: start: 202001
  7. MAGNESIUM OXIDE. [Concomitant]
     Active Substance: MAGNESIUM OXIDE
     Dosage: 250 MILLIGRAM, QD
     Route: 048
     Dates: start: 202001
  8. CILNIDIPINE [Concomitant]
     Active Substance: CILNIDIPINE
     Dosage: 5 MILLIGRAM, QD
     Route: 048
     Dates: start: 202001
  9. ETIZOLAM [Concomitant]
     Active Substance: ETIZOLAM
     Dosage: 0.5 MILLIGRAM, QD
     Route: 048
     Dates: start: 202001

REACTIONS (2)
  - Swelling of eyelid [Recovered/Resolved]
  - Swelling of eyelid [Recovered/Resolved]

NARRATIVE: CASE EVENT DATE: 20201014
